FAERS Safety Report 12128167 (Version 5)
Quarter: 2019Q2

REPORT INFORMATION
  Report Type: Report from Study
  Country: FR (occurrence: FR)
  Receive Date: 20160229
  Receipt Date: 20190619
  Transmission Date: 20190711
  Serious: Yes (Life-Threatening, Other)
  Sender: FDA-Public Use
  Company Number: FR-SA-2016SA040324

PATIENT
  Age: 7 Month
  Sex: Male
  Weight: 7 kg

DRUGS (9)
  1. ALEMTUZUMAB [Suspect]
     Active Substance: ALEMTUZUMAB
     Dosage: 7.5 MG,QD
     Route: 042
     Dates: start: 20160224, end: 20160225
  2. ALEMTUZUMAB [Suspect]
     Active Substance: ALEMTUZUMAB
     Dosage: 7.2 MG,QD
     Route: 042
     Dates: start: 20160211, end: 20160212
  3. PHENOXYMETHYLPENICILLIN [Concomitant]
     Active Substance: PENICILLIN V
     Indication: PROPHYLAXIS
     Dosage: DOSE:0.5
     Route: 048
     Dates: start: 20160201, end: 20160212
  4. METHYLPREDNISOLONE. [Concomitant]
     Active Substance: METHYLPREDNISOLONE
     Indication: PREMEDICATION
     Dosage: 15 MG,UNK
     Route: 042
     Dates: start: 20150224
  5. CYCLOSPORINE. [Concomitant]
     Active Substance: CYCLOSPORINE
     Indication: PREMEDICATION
     Dosage: 80 MG,UNK
     Route: 048
     Dates: start: 20160107
  6. BACTRIM [Concomitant]
     Active Substance: SULFAMETHOXAZOLE\TRIMETHOPRIM
     Indication: PROPHYLAXIS
     Dosage: 200 MG,TIW
     Route: 048
     Dates: start: 20160116
  7. PARACETAMOL [Concomitant]
     Active Substance: ACETAMINOPHEN
     Indication: PREMEDICATION
     Dosage: DOSE: 100
     Route: 042
     Dates: start: 20160210, end: 20160217
  8. ALEMTUZUMAB [Suspect]
     Active Substance: ALEMTUZUMAB
     Indication: HAEMOPHAGOCYTIC LYMPHOHISTIOCYTOSIS
     Dosage: 3.6 MG,QD
     Route: 042
     Dates: start: 20160210, end: 20160210
  9. DEXCHLORPHENIRAMINE [Concomitant]
     Active Substance: DEXCHLORPHENIRAMINE
     Indication: PREMEDICATION
     Dosage: 1 G,QD
     Route: 042
     Dates: start: 20160210, end: 20160212

REACTIONS (15)
  - Haemodynamic instability [Recovered/Resolved]
  - Thrombocytopenia [Recovered/Resolved]
  - Seizure [Recovered/Resolved]
  - Pyrexia [Recovered/Resolved]
  - Hyponatraemia [Recovered/Resolved]
  - Livedo reticularis [Recovered/Resolved]
  - Condition aggravated [Recovered/Resolved]
  - Cytokine release syndrome [Recovered/Resolved]
  - Chills [Recovered/Resolved]
  - Hepatocellular injury [Recovered/Resolved]
  - Brain oedema [Recovered/Resolved]
  - Peripheral coldness [Recovered/Resolved]
  - Capillary nail refill test [Recovered/Resolved]
  - Tachycardia [Recovered/Resolved]
  - Rash [Recovered/Resolved]

NARRATIVE: CASE EVENT DATE: 20160211
